FAERS Safety Report 4285601-6 (Version None)
Quarter: 2004Q1

REPORT INFORMATION
  Report Type: 
  Country: None (occurrence: None)
  Receive Date: 20040203
  Receipt Date: 20040123
  Transmission Date: 20041129
  Serious: Yes (Hospitalization)
  Sender: FDA-Public Use
  Company Number: 2003UW06441

PATIENT
  Age: 64 Year
  Sex: Female
  Weight: 53.8 kg

DRUGS (6)
  1. IRESSA [Suspect]
     Indication: NON-SMALL CELL LUNG CANCER
     Dosage: 250 MG QD PO
     Route: 048
     Dates: start: 20030319, end: 20030430
  2. CELEBREX [Suspect]
     Dosage: 400 MG BID PO
     Route: 048
     Dates: start: 20030319, end: 20030430
  3. BALCOR [Concomitant]
  4. ENALAPRIL [Concomitant]
  5. HIDRION [Concomitant]
  6. MORFINALO [Concomitant]

REACTIONS (3)
  - BLOOD UREA INCREASED [None]
  - DIARRHOEA [None]
  - HYPOTENSION [None]
